FAERS Safety Report 4645422-9 (Version None)
Quarter: 2005Q2

REPORT INFORMATION
  Report Type: 
  Country: None (occurrence: None)
  Receive Date: 20050425
  Receipt Date: 20050407
  Transmission Date: 20051028
  Serious: Yes (Hospitalization)
  Sender: FDA-Public Use
  Company Number: DSA_60483_2005

PATIENT
  Age: 63 Year
  Sex: Female

DRUGS (10)
  1. DIHYDROERGOTAMINE MESYLATE [Suspect]
     Dosage: 0.5 MG QDAY
  2. CAFFEINE [Suspect]
     Indication: HEADACHE
     Dosage: 40 G QDAY
  3. CAFFEINE [Suspect]
     Indication: NAUSEA
     Dosage: 40 G QDAY
  4. CAFFEINE [Suspect]
     Indication: PHOTOPHOBIA
     Dosage: 40 G QDAY
  5. PROPHYPHENAZONE [Suspect]
     Indication: HEADACHE
     Dosage: 175 MG QDAY
  6. PROPHYPHENAZONE [Suspect]
     Indication: NAUSEA
     Dosage: 175 MG QDAY
  7. PROPHYPHENAZONE [Suspect]
     Indication: PHOTOPHOBIA
     Dosage: 175 MG QDAY
  8. BISPHOSPHONATES [Concomitant]
  9. ENALAPRIL MALEATE [Concomitant]
  10. HYDROCHLOROTHIAZIDE [Concomitant]

REACTIONS (7)
  - DISORIENTATION [None]
  - DIZZINESS [None]
  - HEADACHE [None]
  - HYPERTENSION [None]
  - NAUSEA [None]
  - NERVOUSNESS [None]
  - PHOTOPHOBIA [None]
